FAERS Safety Report 13084789 (Version 1)
Quarter: 2017Q1

REPORT INFORMATION
  Report Type: Spontaneous
  Country: FR (occurrence: FR)
  Receive Date: 20170104
  Receipt Date: 20170104
  Transmission Date: 20170428
  Serious: Yes (Congenital Anomaly)
  Sender: FDA-Public Use
  Company Number: FR-PFIZER INC-2016601978

PATIENT
  Sex: Male

DRUGS (4)
  1. CLAMOXYL /00249601/ [Concomitant]
     Active Substance: AMOXICILLIN
     Indication: STREPTOCOCCAL INFECTION
     Dosage: UNK
     Route: 064
  2. NEURONTIN [Suspect]
     Active Substance: GABAPENTIN
     Indication: EPILEPSY
     Dosage: 1600 MG, DAILY
     Route: 064
  3. TEGRETOL [Suspect]
     Active Substance: CARBAMAZEPINE
     Indication: EPILEPSY
     Dosage: 800 MG, DAILY
     Route: 064
  4. GENTALLINE [Concomitant]
     Active Substance: GENTAMICIN SULFATE
     Indication: STREPTOCOCCAL INFECTION
     Dosage: UNK
     Route: 064

REACTIONS (5)
  - Dyspnoea [Recovered/Resolved]
  - Laryngomalacia [Recovering/Resolving]
  - Maternal exposure during pregnancy [Not Recovered/Not Resolved]
  - Apgar score low [Recovered/Resolved]
  - Pectus excavatum [Not Recovered/Not Resolved]

NARRATIVE: CASE EVENT DATE: 2003
